FAERS Safety Report 20155564 (Version 1)
Quarter: 2021Q4

REPORT INFORMATION
  Report Type: Spontaneous
  Country: JP (occurrence: JP)
  Receive Date: 20211207
  Receipt Date: 20211207
  Transmission Date: 20220303
  Serious: Yes (Other)
  Sender: FDA-Public Use
  Company Number: JP-UCBSA-2021056873

PATIENT
  Age: 83 Year
  Sex: Female

DRUGS (1)
  1. LEVOCETIRIZINE HYDROCHLORIDE [Suspect]
     Active Substance: LEVOCETIRIZINE HYDROCHLORIDE
     Indication: Product used for unknown indication
     Dosage: 5MG
     Route: 048

REACTIONS (2)
  - Bradycardia [Unknown]
  - Hyperkalaemia [Unknown]
